FAERS Safety Report 19301796 (Version 2)
Quarter: 2021Q4

REPORT INFORMATION
  Report Type: Spontaneous
  Country: US (occurrence: US)
  Receive Date: 20210524
  Receipt Date: 20211227
  Transmission Date: 20220304
  Serious: Yes (Other)
  Sender: FDA-Public Use
  Company Number: US-PURDUE-USA-2020-0176258

PATIENT
  Sex: Male

DRUGS (2)
  1. OXYCONTIN [Suspect]
     Active Substance: OXYCODONE HYDROCHLORIDE
     Indication: Pain
     Dosage: 30 MG, Q12H
     Route: 048
     Dates: start: 2004
  2. FENTANYL [Suspect]
     Active Substance: FENTANYL
     Indication: Product used for unknown indication
     Dosage: UNKNOWN
     Route: 065

REACTIONS (9)
  - Drug dependence [Unknown]
  - Amnesia [Unknown]
  - Judgement impaired [Unknown]
  - Disturbance in attention [Unknown]
  - Coordination abnormal [Unknown]
  - Impulse-control disorder [Unknown]
  - Confusional state [Unknown]
  - Anxiety [Unknown]
  - Fine motor skill dysfunction [Unknown]
